FAERS Safety Report 26142360 (Version 2)
Quarter: 2025Q4

REPORT INFORMATION
  Report Type: Spontaneous
  Country: CN (occurrence: CN)
  Receive Date: 20251210
  Receipt Date: 20251216
  Transmission Date: 20260117
  Serious: Yes (Hospitalization)
  Sender: BEIGENE
  Company Number: CN-BEONEMEDICINES-BGN-2025-021759

PATIENT
  Age: 74 Year
  Sex: Male

DRUGS (1)
  1. TISLELIZUMAB [Suspect]
     Active Substance: TISLELIZUMAB
     Indication: Bladder cancer
     Dosage: 200 MILLIGRAM, Q3WK

REACTIONS (5)
  - Immune-mediated myositis [Recovering/Resolving]
  - Immune-mediated myocarditis [Recovering/Resolving]
  - Hepatic function abnormal [Recovering/Resolving]
  - Thyroid disorder [Recovering/Resolving]
  - Hypophysitis [Recovering/Resolving]
